FAERS Safety Report 10103078 (Version 2)
Quarter: 2014Q2

REPORT INFORMATION
  Report Type: Other
  Country: US (occurrence: US)
  Receive Date: 20140424
  Receipt Date: 20140625
  Transmission Date: 20141212
  Serious: Yes (Other)
  Sender: FDA-Public Use
  Company Number: US-GSKPPD-2014GSK000162

PATIENT
  Age: 63 Year
  Sex: Male

DRUGS (3)
  1. AVANDIA [Suspect]
     Indication: DIABETES MELLITUS
     Route: 048
     Dates: start: 20070224, end: 20090116
  2. LOTREL [Concomitant]
  3. ZOCOR [Concomitant]

REACTIONS (3)
  - Cerebrovascular accident [None]
  - Mental disability [None]
  - Acute coronary syndrome [None]
